FAERS Safety Report 8105686-6 (Version None)
Quarter: 2012Q1

REPORT INFORMATION
  Report Type: 
  Country: None (occurrence: None)
  Receive Date: 20120201
  Receipt Date: 20120119
  Transmission Date: 20120608
  Serious: Yes (Other)
  Sender: FDA-Public Use
  Company Number: MX-ELI_LILLY_AND_COMPANY-MX201103004033

PATIENT
  Sex: Female
  Weight: 64 kg

DRUGS (9)
  1. HUMALOG [Suspect]
     Dosage: 2 IU, EACH MORNING
     Route: 058
     Dates: start: 20110301
  2. FENTICONAZOLE [Concomitant]
  3. HUMALOG [Suspect]
     Dosage: 10 IU, EACH EVENING
     Route: 058
     Dates: start: 20110307
  4. PROGESTERONE [Concomitant]
     Dosage: 200 MG, 3/D
     Dates: start: 20110307
  5. HUMALOG [Suspect]
     Dosage: 10 IU, EACH EVENING
     Route: 058
     Dates: start: 20110307
  6. HUMALOG [Suspect]
     Indication: DIABETES MELLITUS
     Dosage: 20 IU, UNKNOWN
     Route: 058
     Dates: start: 20110307
  7. FOSFOMYCIN [Concomitant]
     Dosage: 500 MG, 3/D
     Dates: start: 20110307
  8. FOLIC ACID [Concomitant]
     Indication: PREGNANCY
     Dosage: UNK
     Dates: start: 20110220
  9. HUMALOG [Suspect]
     Dosage: 10 IU, EACH EVENING
     Route: 058
     Dates: start: 20110307, end: 20110701

REACTIONS (4)
  - PRE-ECLAMPSIA [None]
  - MATERNAL EXPOSURE DURING PREGNANCY [None]
  - EXPIRED DRUG ADMINISTERED [None]
  - BLOOD GLUCOSE INCREASED [None]
